FAERS Safety Report 5671281-1 (Version None)
Quarter: 2008Q1

REPORT INFORMATION
  Report Type: 
  Country: None (occurrence: None)
  Receive Date: 20080318
  Receipt Date: 20080310
  Transmission Date: 20080703
  Serious: Yes (Hospitalization, Other)
  Sender: FDA-Public Use
  Company Number: IE-BRISTOL-MYERS SQUIBB COMPANY-14108872

PATIENT
  Age: 34 Year
  Sex: Male

DRUGS (6)
  1. ATAZANAVIR SULFATE [Interacting]
     Indication: HIV INFECTION
  2. FLURAZEPAM [Interacting]
     Dosage: 15 MG TABLETS
  3. RITONAVIR [Interacting]
     Indication: HIV INFECTION
  4. METHADON HCL TAB [Interacting]
     Indication: DRUG DEPENDENCE
  5. TRUVADA [Suspect]
     Indication: HIV INFECTION
  6. CO-TRIMOXAZOLE [Suspect]

REACTIONS (4)
  - DRUG INTERACTION [None]
  - OVERDOSE [None]
  - TORSADE DE POINTES [None]
  - TREATMENT NONCOMPLIANCE [None]
